FAERS Safety Report 5740465-6 (Version None)
Quarter: 2008Q2

REPORT INFORMATION
  Report Type: 
  Country: None (occurrence: None)
  Receive Date: 20080516
  Receipt Date: 20080508
  Transmission Date: 20081010
  Serious: Yes (Hospitalization)
  Sender: FDA-Public Use
  Company Number: CN-ASTRAZENECA-2008AP03208

PATIENT
  Age: 14393 Day
  Sex: Female
  Weight: 51 kg

DRUGS (3)
  1. SEROQUEL [Suspect]
     Indication: SCHIZOPHRENIA
     Dosage: STARTED AFTER RISPERIDONE STOPPED
     Route: 048
     Dates: start: 20080226
  2. RISPERDAL [Suspect]
     Indication: SCHIZOPHRENIA
     Route: 048
     Dates: start: 20080218, end: 20080220
  3. DIAZEPAM [Concomitant]

REACTIONS (1)
  - TRANSAMINASES INCREASED [None]
